FAERS Safety Report 7157119-4 (Version None)
Quarter: 2010Q4

REPORT INFORMATION
  Report Type: 
  Country: None (occurrence: None)
  Receive Date: 20101214
  Receipt Date: 20100106
  Transmission Date: 20110411
  Serious: No
  Sender: FDA-Public Use
  Company Number: US-ASTRAZENECA-2010SE00502

PATIENT
  Age: 77 Year
  Sex: Female
  Weight: 61.2 kg

DRUGS (1)
  1. CRESTOR [Suspect]
     Route: 048
     Dates: start: 20090301, end: 20091001

REACTIONS (3)
  - DIZZINESS [None]
  - LETHARGY [None]
  - MALAISE [None]
